FAERS Safety Report 19445007 (Version 1)
Quarter: 2021Q2

REPORT INFORMATION
  Report Type: Spontaneous
  Country: TT (occurrence: TT)
  Receive Date: 20210622
  Receipt Date: 20210622
  Transmission Date: 20210717
  Serious: Yes (Hospitalization)
  Sender: FDA-Public Use
  Company Number: TT-JNJFOC-20210644399

PATIENT
  Age: 64 Year
  Sex: Male

DRUGS (1)
  1. RIVAROXABAN [Suspect]
     Active Substance: RIVAROXABAN
     Indication: CEREBROVASCULAR ACCIDENT PROPHYLAXIS
     Dosage: 15 MG, QD
     Route: 048

REACTIONS (5)
  - Asthenia [Unknown]
  - Circulatory collapse [Unknown]
  - Cerebrovascular accident [Unknown]
  - Dysarthria [Unknown]
  - Gait inability [Unknown]

NARRATIVE: CASE EVENT DATE: 20210615
